FAERS Safety Report 7514619-2 (Version None)
Quarter: 2011Q2

REPORT INFORMATION
  Report Type: 
  Country: None (occurrence: None)
  Receive Date: 20110601
  Receipt Date: 20110519
  Transmission Date: 20111010
  Serious: Yes (Other)
  Sender: FDA-Public Use
  Company Number: US-RB-022550-11

PATIENT
  Sex: Female

DRUGS (1)
  1. MUCINEX DM [Suspect]
     Indication: RHINORRHOEA
     Dosage: TWO TABLETS TAKEN 15 HOURS APART OVER 2 DAYS
     Route: 048

REACTIONS (7)
  - LOSS OF CONSCIOUSNESS [None]
  - DIZZINESS [None]
  - NAUSEA [None]
  - NERVOUSNESS [None]
  - MALAISE [None]
  - VISION BLURRED [None]
  - DISTURBANCE IN ATTENTION [None]
